FAERS Safety Report 14508806 (Version 2)
Quarter: 2018Q2

REPORT INFORMATION
  Report Type: Report from Study
  Country: DE (occurrence: DE)
  Receive Date: 20180209
  Receipt Date: 20180406
  Transmission Date: 20180711
  Serious: Yes (Death, Other)
  Sender: FDA-Public Use
  Company Number: DE-BRISTOL-MYERS SQUIBB COMPANY-BMS-2018-010657

PATIENT
  Age: 92 Year
  Sex: Female
  Weight: 65.1 kg

DRUGS (1)
  1. APIXABAN [Suspect]
     Active Substance: APIXABAN
     Indication: CEREBROVASCULAR ACCIDENT PROPHYLAXIS
     Route: 065

REACTIONS (2)
  - Intraventricular haemorrhage [Fatal]
  - Cerebrospinal fluid retention [Fatal]

NARRATIVE: CASE EVENT DATE: 20180114
